FAERS Safety Report 4430679-X (Version None)
Quarter: 2004Q3

REPORT INFORMATION
  Report Type: 
  Country: None (occurrence: None)
  Receive Date: 20040819
  Receipt Date: 20040819
  Transmission Date: 20050211
  Serious: Yes (Hospitalization)
  Sender: FDA-Public Use
  Company Number: None

PATIENT
  Sex: Female
  Weight: 54.7945 kg

DRUGS (15)
  1. LINEZOLID PO [Suspect]
     Indication: CULTURE URINE
     Dosage: 600 MG 1 TAB BID X 10 DAYS
     Dates: start: 20040625
  2. LINEZOLID PO [Suspect]
     Indication: GLYCOPEPTIDE ANTIBIOTIC RESISTANT ENTEROCOCCAL INFECTION
     Dosage: 600 MG 1 TAB BID X 10 DAYS
     Dates: start: 20040625
  3. ALENDRANATE [Concomitant]
  4. AMIODARONE [Concomitant]
  5. ASPIRIN [Concomitant]
  6. PLAVIX [Concomitant]
  7. DICYLCOMINE [Concomitant]
  8. DOCYSATE CALCIUM [Concomitant]
  9. ESTROGEN [Concomitant]
  10. FERROUS GLUCONATE [Concomitant]
  11. LACTOLOSE [Concomitant]
  12. LEVOTHYROXINE SODIUM [Concomitant]
  13. LISINOPRIL [Concomitant]
  14. METOPROLOL [Concomitant]
  15. SIMVASTATIN [Concomitant]

REACTIONS (2)
  - CONTUSION [None]
  - THROMBOCYTOPENIA [None]
